FAERS Safety Report 9382770 (Version 1)
Quarter: 2013Q3

REPORT INFORMATION
  Report Type: Spontaneous
  Country: US (occurrence: US)
  Receive Date: 20130703
  Receipt Date: 20130703
  Transmission Date: 20140515
  Serious: Yes (Other)
  Sender: FDA-Public Use
  Company Number: US-PFIZER INC-2013193213

PATIENT
  Sex: Female
  Weight: 66.67 kg

DRUGS (1)
  1. LIPITOR [Suspect]
     Indication: BLOOD CHOLESTEROL INCREASED
     Dosage: 1 DF, 1X/DAY
     Route: 048

REACTIONS (3)
  - Muscle injury [Unknown]
  - Myalgia [Recovered/Resolved]
  - Muscular weakness [Recovered/Resolved]
